FAERS Safety Report 4474905-X (Version None)
Quarter: 2004Q4

REPORT INFORMATION
  Report Type: 
  Country: None (occurrence: None)
  Receive Date: 20041014
  Receipt Date: 20041007
  Transmission Date: 20050328
  Serious: Yes (Life-Threatening, Hospitalization, Disabling)
  Sender: FDA-Public Use
  Company Number: US-MERCK-0410USA00984

PATIENT
  Age: 76 Year
  Sex: Male

DRUGS (7)
  1. ASPIRIN [Concomitant]
     Route: 065
  2. ATENOLOL [Concomitant]
     Route: 065
  3. LASIX [Concomitant]
     Route: 065
  4. COZAAR [Concomitant]
     Route: 065
  5. POTASSIUM (UNSPECIFIED) [Concomitant]
     Route: 065
  6. QUININE [Concomitant]
     Route: 065
  7. VIOXX [Suspect]
     Indication: ARTHRITIS
     Route: 048
     Dates: start: 20010401, end: 20040930

REACTIONS (3)
  - AMNESIA [None]
  - CEREBROVASCULAR ACCIDENT [None]
  - COORDINATION ABNORMAL [None]
